FAERS Safety Report 7997914-2 (Version None)
Quarter: 2011Q4

REPORT INFORMATION
  Report Type: 
  Country: None (occurrence: None)
  Receive Date: 20111221
  Receipt Date: 20111110
  Transmission Date: 20120403
  Serious: Yes (Hospitalization)
  Sender: FDA-Public Use
  Company Number: GB-GLAXOSMITHKLINE-B0765733A

PATIENT
  Sex: Male

DRUGS (5)
  1. OFATUMUMAB [Suspect]
     Indication: RICHTER'S SYNDROME
     Dosage: 1000MG CYCLIC
     Route: 042
     Dates: start: 20111014
  2. VINCRISTINE [Suspect]
     Indication: RICHTER'S SYNDROME
     Dosage: 2MG CYCLIC
     Route: 042
     Dates: start: 20110930
  3. DOXORUBICIN HCL [Suspect]
     Indication: RICHTER'S SYNDROME
     Dosage: 100MG CYCLIC
     Route: 042
     Dates: start: 20110930
  4. CYCLOPHOSPHAMIDE [Suspect]
     Indication: RICHTER'S SYNDROME
     Dosage: 1500MG CYCLIC
     Route: 042
     Dates: start: 20110930
  5. PREDNISOLONE [Suspect]
     Indication: RICHTER'S SYNDROME
     Dosage: 100MG CYCLIC
     Route: 048
     Dates: start: 20110930

REACTIONS (2)
  - DIZZINESS [None]
  - NAUSEA [None]
